FAERS Safety Report 6686656-1 (Version None)
Quarter: 2010Q2

REPORT INFORMATION
  Report Type: 
  Country: None (occurrence: None)
  Receive Date: 20100416
  Receipt Date: 20100416
  Transmission Date: 20101027
  Serious: No
  Sender: FDA-Public Use
  Company Number: None

PATIENT

DRUGS (2)
  1. HYOSCYAMINE SULFATE [Suspect]
  2. CYMBALTA [Suspect]

REACTIONS (6)
  - AGITATION [None]
  - AMNESIA [None]
  - HALLUCINATION [None]
  - MENTAL STATUS CHANGES [None]
  - OESOPHAGEAL SPASM [None]
  - VOMITING [None]
